FAERS Safety Report 6955353-7 (Version None)
Quarter: 2010Q3

REPORT INFORMATION
  Report Type: 
  Country: None (occurrence: None)
  Receive Date: 20100830
  Receipt Date: 20100818
  Transmission Date: 20110219
  Serious: No
  Sender: FDA-Public Use
  Company Number: GB-BAXTER-2010BH018825

PATIENT
  Age: 45 Year
  Sex: Male
  Weight: 68 kg

DRUGS (3)
  1. GAMMAGARD LIQUID [Suspect]
     Indication: IMMUNOGLOBULINS DECREASED
     Route: 042
     Dates: start: 20100706, end: 20100706
  2. GAMMAGARD LIQUID [Suspect]
     Indication: BURKITT'S LYMPHOMA
     Route: 042
     Dates: start: 20100706, end: 20100706
  3. GAMMAGARD LIQUID [Suspect]
     Indication: SECONDARY IMMUNODEFICIENCY
     Route: 042
     Dates: start: 20100706, end: 20100706

REACTIONS (2)
  - RASH [None]
  - URTICARIA [None]
